FAERS Safety Report 7781016-4 (Version None)
Quarter: 2011Q3

REPORT INFORMATION
  Report Type: 
  Country: None (occurrence: None)
  Receive Date: 20110927
  Receipt Date: 20110921
  Transmission Date: 20111222
  Serious: Yes (Death)
  Sender: FDA-Public Use
  Company Number: PHEH2011US04995

PATIENT
  Sex: Male
  Weight: 61.678 kg

DRUGS (1)
  1. EXJADE [Suspect]
     Indication: PROSTATE CANCER
     Dosage: 1500 MG, DAILY
     Route: 048
     Dates: start: 20090520

REACTIONS (1)
  - DEATH [None]
